FAERS Safety Report 5659521-6 (Version None)
Quarter: 2008Q1

REPORT INFORMATION
  Report Type: 
  Country: None (occurrence: None)
  Receive Date: 20080307
  Receipt Date: 20080307
  Transmission Date: 20080703
  Serious: Yes (Other)
  Sender: FDA-Public Use
  Company Number: None

PATIENT
  Age: 37 Year
  Sex: Female
  Weight: 61.2356 kg

DRUGS (2)
  1. MIRALAX [Suspect]
     Indication: CONSTIPATION
     Dosage: 17G ONCE A DAY PO
     Route: 048
     Dates: start: 20080220, end: 20080227
  2. MIRALAX [Suspect]
     Indication: FAECES HARD
     Dosage: 17G ONCE A DAY PO
     Route: 048
     Dates: start: 20080220, end: 20080227

REACTIONS (2)
  - ANORECTAL DISCOMFORT [None]
  - PRURITUS [None]
